FAERS Safety Report 19991278 (Version 1)
Quarter: 2021Q4

REPORT INFORMATION
  Report Type: Spontaneous
  Country: US (occurrence: US)
  Receive Date: 20211025
  Receipt Date: 20211025
  Transmission Date: 20220303
  Serious: No
  Sender: FDA-Public Use
  Company Number: None

PATIENT
  Age: 38 Year
  Sex: Male
  Weight: 99 kg

DRUGS (2)
  1. FIASP [Suspect]
     Active Substance: INSULIN ASPART
     Indication: Type 1 diabetes mellitus
     Dosage: ?          QUANTITY:1 INJECTION(S);
     Route: 058
     Dates: start: 20211024
  2. DEVICE [Suspect]
     Active Substance: DEVICE

REACTIONS (3)
  - Drug ineffective [None]
  - Blood glucose increased [None]
  - Product quality issue [None]

NARRATIVE: CASE EVENT DATE: 20211025
